FAERS Safety Report 7078656-7 (Version None)
Quarter: 2010Q4

REPORT INFORMATION
  Report Type: 
  Country: None (occurrence: None)
  Receive Date: 20101102
  Receipt Date: 20101026
  Transmission Date: 20110411
  Serious: Yes (Life-Threatening, Other)
  Sender: FDA-Public Use
  Company Number: PHHO2003CA03420

PATIENT
  Sex: Male

DRUGS (7)
  1. CLOZARIL [Suspect]
     Dosage: UNK, UNK
     Dates: start: 20020716, end: 20030312
  2. CLOZARIL [Suspect]
     Dosage: UNK
     Dates: start: 20100812
  3. CELEXA [Concomitant]
     Dosage: 30 MG, UNK
     Dates: start: 19920501
  4. CELEXA [Concomitant]
     Dosage: 40 MG AM AND 2 MG HS
  5. KEMADRIN [Concomitant]
     Dosage: 5 MG, BID
     Route: 048
     Dates: start: 19910101
  6. SEROQUEL [Concomitant]
     Dosage: 100 MG AM AND 800 MG HS
  7. RISPERDAL [Concomitant]
     Dosage: 3 MG, BID

REACTIONS (9)
  - AGGRESSION [None]
  - AGRANULOCYTOSIS [None]
  - CONFUSIONAL STATE [None]
  - DISTURBANCE IN SOCIAL BEHAVIOUR [None]
  - HALLUCINATION, AUDITORY [None]
  - NEUTROPENIA [None]
  - SCHIZOPHRENIA, PARANOID TYPE [None]
  - SINUSITIS [None]
  - WHITE BLOOD CELL COUNT DECREASED [None]
